FAERS Safety Report 6639125-9 (Version None)
Quarter: 2010Q1

REPORT INFORMATION
  Report Type: 
  Country: None (occurrence: None)
  Receive Date: 20100312
  Receipt Date: 20100227
  Transmission Date: 20100710
  Serious: No
  Sender: FDA-Public Use
  Company Number: 2010SP003668

PATIENT
  Age: 30 Year
  Sex: Female
  Weight: 57 kg

DRUGS (1)
  1. COPPERTONE GEL SPF 30 (AVOBENZONE/OCTISALATE/OCTOCRYLENE/OXYBENZONE) ( [Suspect]
     Dosage: TOP
     Route: 061
     Dates: start: 20100109, end: 20100110

REACTIONS (8)
  - BURNING SENSATION [None]
  - DEPENDENT RUBOR [None]
  - DRUG EXPOSURE DURING PREGNANCY [None]
  - FEELING HOT [None]
  - HYPERAEMIA [None]
  - PRURITUS [None]
  - RASH MACULAR [None]
  - SKIN IRRITATION [None]
